FAERS Safety Report 5826747-8 (Version None)
Quarter: 2008Q3

REPORT INFORMATION
  Report Type: 
  Country: None (occurrence: None)
  Receive Date: 20080728
  Receipt Date: 20080728
  Transmission Date: 20090109
  Serious: No
  Sender: FDA-Public Use
  Company Number: None

PATIENT
  Age: 89 Year
  Sex: Male

DRUGS (1)
  1. LEVAQUIN [Suspect]

REACTIONS (2)
  - LOSS OF CONTROL OF LEGS [None]
  - TENDON RUPTURE [None]
